FAERS Safety Report 25494063 (Version 1)
Quarter: 2025Q2

REPORT INFORMATION
  Report Type: Spontaneous
  Country: TW (occurrence: TW)
  Receive Date: 20250630
  Receipt Date: 20250630
  Transmission Date: 20250717
  Serious: Yes (Other)
  Sender: TAKEDA
  Company Number: TW-MMM-Otsuka-9A65OG2E

PATIENT
  Age: 48 Year
  Sex: Female

DRUGS (20)
  1. ICLUSIG [Suspect]
     Active Substance: PONATINIB HYDROCHLORIDE
     Indication: Philadelphia chromosome positive
  2. ICLUSIG [Suspect]
     Active Substance: PONATINIB HYDROCHLORIDE
     Indication: Acute lymphocytic leukaemia
  3. METHOTREXATE [Suspect]
     Active Substance: METHOTREXATE
     Indication: Acute lymphocytic leukaemia
  4. METHOTREXATE [Suspect]
     Active Substance: METHOTREXATE
  5. METHOTREXATE [Suspect]
     Active Substance: METHOTREXATE
  6. DEXAMETHASONE [Suspect]
     Active Substance: DEXAMETHASONE
     Indication: Product used for unknown indication
     Dates: start: 20211207, end: 20220103
  7. DEXAMETHASONE [Suspect]
     Active Substance: DEXAMETHASONE
  8. DEXAMETHASONE [Suspect]
     Active Substance: DEXAMETHASONE
  9. DEXAMETHASONE [Suspect]
     Active Substance: DEXAMETHASONE
     Dates: start: 20221230, end: 20230127
  10. DEXAMETHASONE [Suspect]
     Active Substance: DEXAMETHASONE
  11. VINCRISTINE [Suspect]
     Active Substance: VINCRISTINE
     Indication: Product used for unknown indication
     Dates: start: 20211207, end: 20220103
  12. VINCRISTINE [Suspect]
     Active Substance: VINCRISTINE
     Dates: start: 20220218, end: 20220303
  13. VINCRISTINE [Suspect]
     Active Substance: VINCRISTINE
     Dates: start: 20220926, end: 20221003
  14. VINCRISTINE [Suspect]
     Active Substance: VINCRISTINE
  15. VINCRISTINE [Suspect]
     Active Substance: VINCRISTINE
     Dates: start: 20221230, end: 20230127
  16. PREDNISOLONE [Suspect]
     Active Substance: PREDNISOLONE
     Indication: Product used for unknown indication
  17. PREDNISOLONE [Suspect]
     Active Substance: PREDNISOLONE
     Dates: start: 20220330, end: 20220412
  18. DAUNORUBICIN HYDROCHLORIDE [Suspect]
     Active Substance: DAUNORUBICIN HYDROCHLORIDE
     Indication: Product used for unknown indication
     Dates: start: 20220218, end: 20220303
  19. DASATINIB [Suspect]
     Active Substance: DASATINIB
     Indication: Product used for unknown indication
     Dates: start: 20211207, end: 20220103
  20. DASATINIB [Suspect]
     Active Substance: DASATINIB
     Dates: start: 20220926, end: 20221003

REACTIONS (1)
  - Acute lymphocytic leukaemia [Unknown]
